FAERS Safety Report 9001121 (Version 1)
Quarter: 2013Q1

REPORT INFORMATION
  Report Type: Spontaneous
  Country: US (occurrence: None)
  Receive Date: 20130102
  Receipt Date: 20130102
  Transmission Date: 20140127
  Serious: Yes (Hospitalization)
  Sender: FDA-Public Use
  Company Number: None

PATIENT
  Age: 78 Year
  Sex: Male
  Weight: 91 kg

DRUGS (2)
  1. DEXTROSE\HEPARIN [Suspect]
     Indication: PULMONARY EMBOLISM
     Route: 042
     Dates: start: 20120704, end: 20120713
  2. WARFARIN [Suspect]
     Route: 048
     Dates: start: 20120707, end: 20120713

REACTIONS (4)
  - Gastric haemorrhage [None]
  - International normalised ratio increased [None]
  - Haemoglobin decreased [None]
  - Haematocrit decreased [None]
